FAERS Safety Report 24449155 (Version 1)
Quarter: 2024Q4

REPORT INFORMATION
  Report Type: Spontaneous
  Country: IT (occurrence: IT)
  Receive Date: 20241017
  Receipt Date: 20241017
  Transmission Date: 20250114
  Serious: Yes (Other)
  Sender: CELLTRION
  Company Number: None

PATIENT

DRUGS (1)
  1. INFLIXIMAB [Suspect]
     Active Substance: INFLIXIMAB
     Indication: Colitis ulcerative
     Dosage: 500 MG, Q4WEEKS; 100 MG, 5 FL 4
     Route: 042
     Dates: start: 20231027, end: 20240201

REACTIONS (4)
  - Polyarthritis [Recovering/Resolving]
  - Psoriasis [Recovering/Resolving]
  - Drug ineffective [Recovering/Resolving]
  - Intentional product use issue [Unknown]

NARRATIVE: CASE EVENT DATE: 20240201
